FAERS Safety Report 23140774 (Version 1)
Quarter: 2023Q4

REPORT INFORMATION
  Report Type: Spontaneous
  Country: FR (occurrence: FR)
  Receive Date: 20231103
  Receipt Date: 20231103
  Transmission Date: 20240110
  Serious: Yes (Other)
  Sender: FDA-Public Use
  Company Number: FR-GLAXOSMITHKLINE-FR2023EME007845

PATIENT

DRUGS (1)
  1. JEMPERLI [Suspect]
     Active Substance: DOSTARLIMAB-GXLY
     Indication: Rectal adenocarcinoma
     Dosage: 1 DF, Q3W
     Dates: start: 20230131

REACTIONS (6)
  - Rectal haemorrhage [Recovering/Resolving]
  - Proctalgia [Recovering/Resolving]
  - Condition aggravated [Unknown]
  - Pelvic pain [Unknown]
  - Drug ineffective [Unknown]
  - Off label use [Unknown]

NARRATIVE: CASE EVENT DATE: 20230131
